FAERS Safety Report 16742931 (Version 2)
Quarter: 2019Q3

REPORT INFORMATION
  Report Type: Spontaneous
  Country: US (occurrence: US)
  Receive Date: 20190827
  Receipt Date: 20190905
  Transmission Date: 20191005
  Serious: No
  Sender: FDA-Public Use
  Company Number: US-AMGEN-USASP2019137091

PATIENT
  Age: 82 Year
  Sex: Male
  Weight: 70.3 kg

DRUGS (2)
  1. KYPROLIS [Suspect]
     Active Substance: CARFILZOMIB
     Indication: PRODUCT USED FOR UNKNOWN INDICATION
     Dosage: 89 MILLIGRAM (30 MILLIGRAM VIAL)
     Route: 065
     Dates: start: 20160415
  2. KYPROLIS [Suspect]
     Active Substance: CARFILZOMIB
     Dosage: 89 MILLIGRAM (60 MILLIGRAM VIAL)
     Route: 065

REACTIONS (1)
  - Intercepted product preparation error [Unknown]

NARRATIVE: CASE EVENT DATE: 20190823
